FAERS Safety Report 9246345 (Version 1)
Quarter: 2013Q2

REPORT INFORMATION
  Report Type: Report from Study
  Country: BR (occurrence: BR)
  Receive Date: 20130422
  Receipt Date: 20130422
  Transmission Date: 20140414
  Serious: Yes (Hospitalization)
  Sender: FDA-Public Use
  Company Number: PHHY2013BR038496

PATIENT
  Age: 57 Year
  Sex: Female

DRUGS (2)
  1. FORASEQ [Suspect]
     Indication: ANTASTHMATIC DRUG LEVEL BELOW THERAPEUTIC
     Dosage: 12/400 UG, UNK
     Dates: start: 2005
  2. SERETIDE [Suspect]
     Dosage: 1 DF, Q12H
     Dates: start: 2011

REACTIONS (4)
  - Lung infection [Recovering/Resolving]
  - Pyrexia [Recovering/Resolving]
  - Malaise [Recovered/Resolved]
  - Vomiting [Recovered/Resolved]
